FAERS Safety Report 19874891 (Version 1)
Quarter: 2021Q3

REPORT INFORMATION
  Report Type: Spontaneous
  Country: JP (occurrence: JP)
  Receive Date: 20210923
  Receipt Date: 20210923
  Transmission Date: 20211014
  Serious: Yes (Hospitalization, Other)
  Sender: FDA-Public Use
  Company Number: JP-PFIZER INC-202101198728

PATIENT
  Age: 5 Decade
  Sex: Female

DRUGS (2)
  1. ETHYL LOFLAZEPATE [Suspect]
     Active Substance: ETHYL LOFLAZEPATE
     Dosage: 58 MG
     Route: 048
  2. AMLODIPINE BESILATE [Suspect]
     Active Substance: AMLODIPINE BESYLATE
     Dosage: A LARGE AMOUNT
     Route: 048

REACTIONS (2)
  - Intentional overdose [Unknown]
  - Circulatory collapse [Recovering/Resolving]
